FAERS Safety Report 7591029-3 (Version None)
Quarter: 2011Q3

REPORT INFORMATION
  Report Type: 
  Country: None (occurrence: None)
  Receive Date: 20110705
  Receipt Date: 20110630
  Transmission Date: 20111222
  Serious: Yes (Hospitalization, Other)
  Sender: FDA-Public Use
  Company Number: US-PFIZER INC-2011040644

PATIENT
  Sex: Female

DRUGS (4)
  1. CHANTIX [Suspect]
     Indication: SMOKING CESSATION THERAPY
     Dosage: UNK
     Dates: start: 20080101, end: 20080101
  2. PERCOCET [Suspect]
     Indication: PAIN
     Dosage: UNK
     Dates: end: 20100520
  3. DIAZEPAM [Suspect]
     Indication: INSOMNIA
  4. DIAZEPAM [Suspect]
     Indication: ANXIETY
     Dosage: UNK
     Dates: end: 20100501

REACTIONS (17)
  - INTENTIONAL OVERDOSE [None]
  - ABNORMAL BEHAVIOUR [None]
  - INSOMNIA [None]
  - DIARRHOEA [None]
  - DEPRESSION [None]
  - HEADACHE [None]
  - SUICIDE ATTEMPT [None]
  - IRRITABLE BOWEL SYNDROME [None]
  - DISTURBANCE IN ATTENTION [None]
  - ABDOMINAL PAIN UPPER [None]
  - SINUSITIS [None]
  - MALAISE [None]
  - MOOD SWINGS [None]
  - ANGER [None]
  - POLYDIPSIA [None]
  - BRONCHITIS [None]
  - INFLUENZA [None]
